FAERS Safety Report 11307251 (Version 2)
Quarter: 2015Q3

REPORT INFORMATION
  Report Type: Other
  Country: US (occurrence: US)
  Receive Date: 20150723
  Receipt Date: 20150911
  Transmission Date: 20151125
  Serious: Yes (Death, Other)
  Sender: FDA-Public Use
  Company Number: US-SHIRE-US201508261

PATIENT
  Sex: Male
  Weight: 69 kg

DRUGS (1)
  1. FOSRENOL [Suspect]
     Active Substance: LANTHANUM CARBONATE
     Indication: PRODUCT USED FOR UNKNOWN INDICATION
     Dosage: UNK, UNKNOWN
     Route: 048

REACTIONS (2)
  - Metastases to central nervous system [Fatal]
  - Lung cancer metastatic [Fatal]
